FAERS Safety Report 4722592-5 (Version None)
Quarter: 2005Q3

REPORT INFORMATION
  Report Type: 
  Country: None (occurrence: None)
  Receive Date: 20050720
  Receipt Date: 20050705
  Transmission Date: 20060218
  Serious: Yes (Hospitalization, Other)
  Sender: FDA-Public Use
  Company Number: 2004-0007820

PATIENT
  Age: 48 Year
  Sex: Male
  Weight: 67.1324 kg

DRUGS (7)
  1. VIREAD [Suspect]
     Indication: HIV INFECTION
     Dosage: 300 MG, 1 IN 1 D, ORAL
     Route: 048
     Dates: start: 20010521, end: 20020601
  2. KALETRA [Concomitant]
  3. EPIVIR [Concomitant]
  4. INVIRASE [Concomitant]
  5. BACTRIM [Concomitant]
  6. BIAXIN [Concomitant]
  7. PRILOSEC [Concomitant]

REACTIONS (3)
  - HYPERKALAEMIA [None]
  - RENAL FAILURE ACUTE [None]
  - RENAL TUBULAR NECROSIS [None]
